FAERS Safety Report 6940822-6 (Version None)
Quarter: 2010Q3

REPORT INFORMATION
  Report Type: 
  Country: None (occurrence: None)
  Receive Date: 20100825
  Receipt Date: 20100819
  Transmission Date: 20110219
  Serious: Yes (Death, Hospitalization)
  Sender: FDA-Public Use
  Company Number: US-SANOFI-AVENTIS-2010SA049989

PATIENT
  Age: 56 Year
  Sex: Female

DRUGS (8)
  1. TAXOTERE [Suspect]
     Indication: BREAST CANCER
     Route: 051
     Dates: start: 20100526, end: 20100526
  2. TAXOTERE [Suspect]
     Route: 051
     Dates: start: 20100623, end: 20100623
  3. TAXOTERE [Suspect]
     Route: 051
     Dates: start: 20100714, end: 20100714
  4. TAXOTERE [Suspect]
     Route: 051
     Dates: start: 20100804, end: 20100804
  5. CYTOXAN [Suspect]
     Indication: BREAST CANCER
     Route: 065
     Dates: start: 20100526, end: 20100526
  6. CYTOXAN [Suspect]
     Route: 065
     Dates: start: 20100623, end: 20100623
  7. CYTOXAN [Suspect]
     Route: 065
     Dates: start: 20100714, end: 20100714
  8. CYTOXAN [Suspect]
     Route: 065
     Dates: start: 20100804, end: 20100804

REACTIONS (2)
  - ACUTE RESPIRATORY DISTRESS SYNDROME [None]
  - DYSPNOEA [None]
